FAERS Safety Report 23925369 (Version 1)
Quarter: 2024Q2

REPORT INFORMATION
  Report Type: Spontaneous
  Country: US (occurrence: None)
  Receive Date: 20240530
  Receipt Date: 20240530
  Transmission Date: 20240716
  Serious: No
  Sender: FDA-Public Use
  Company Number: None

PATIENT
  Age: 58 Year
  Sex: Male
  Weight: 83.25 kg

DRUGS (5)
  1. MEDERMA ADVANCED SCAR [Suspect]
     Active Substance: ALLANTOIN
     Indication: Scar
     Dosage: 1 APPLY AS NEEDED TOPICAL ?
     Route: 061
     Dates: start: 20240529, end: 20240529
  2. FAMOTIDINE [Concomitant]
     Active Substance: FAMOTIDINE
  3. LIPITOR [Concomitant]
     Active Substance: ATORVASTATIN CALCIUM
  4. AMLODIPINE [Concomitant]
     Active Substance: AMLODIPINE BESYLATE
  5. VITAMINS [Concomitant]
     Active Substance: VITAMINS

REACTIONS (2)
  - Application site rash [None]
  - Rash pruritic [None]

NARRATIVE: CASE EVENT DATE: 20240529
